FAERS Safety Report 6133416-6 (Version None)
Quarter: 2009Q1

REPORT INFORMATION
  Report Type: 
  Country: None (occurrence: None)
  Receive Date: 20090326
  Receipt Date: 20090318
  Transmission Date: 20090719
  Serious: Yes (Other)
  Sender: FDA-Public Use
  Company Number: JP-PFIZER INC-2009185093

PATIENT

DRUGS (2)
  1. METHYLPREDNISOLONE AND METHYLPREDNISOLONE ACETATE AND METHYLPREDNISOLO [Suspect]
  2. ELASPOL [Concomitant]

REACTIONS (1)
  - PNEUMONIA CYTOMEGALOVIRAL [None]
